FAERS Safety Report 11785308 (Version 2)
Quarter: 2015Q4

REPORT INFORMATION
  Report Type: Spontaneous
  Country: US (occurrence: US)
  Receive Date: 20151130
  Receipt Date: 20151204
  Transmission Date: 20160305
  Serious: Yes (Death, Hospitalization, Other)
  Sender: FDA-Public Use
  Company Number: US-TEVA-612983USA

PATIENT
  Age: 21 Year
  Sex: Female
  Weight: 59 kg

DRUGS (6)
  1. IBUPROFEN. [Concomitant]
     Active Substance: IBUPROFEN
     Route: 048
  2. LAMOTRIGINE. [Concomitant]
     Active Substance: LAMOTRIGINE
     Dosage: AN UNKNOWN AMOUNT OF LAMOTRIGINE
     Route: 048
  3. TOPIRAMATE. [Interacting]
     Active Substance: TOPIRAMATE
  4. HYDROXYZINE [Concomitant]
     Active Substance: HYDROXYZINE\HYDROXYZINE HYDROCHLORIDE
     Route: 048
  5. CARBAMAZEPINE. [Suspect]
     Active Substance: CARBAMAZEPINE
     Route: 048
  6. FLUOXETINE [Concomitant]
     Active Substance: FLUOXETINE HYDROCHLORIDE
     Route: 048

REACTIONS (12)
  - Generalised tonic-clonic seizure [Unknown]
  - Toxicity to various agents [Fatal]
  - Hypertension [Unknown]
  - Confusional state [Unknown]
  - Drug interaction [Fatal]
  - Acute respiratory distress syndrome [Fatal]
  - Cardiac arrest [Fatal]
  - Dysarthria [Unknown]
  - Tachycardia [Unknown]
  - Suicidal ideation [Unknown]
  - Overdose [Fatal]
  - Gait disturbance [Unknown]
